FAERS Safety Report 6267942-6 (Version None)
Quarter: 2009Q3

REPORT INFORMATION
  Report Type: 
  Country: None (occurrence: None)
  Receive Date: 20090713
  Receipt Date: 20090629
  Transmission Date: 20100115
  Serious: Yes (Hospitalization)
  Sender: FDA-Public Use
  Company Number: 09-001053

PATIENT
  Age: 16 Year
  Sex: Male
  Weight: 64.9 kg

DRUGS (1)
  1. DORYX [Suspect]
     Indication: ACNE
     Dosage: 75MG, QD, ORAL
     Route: 048
     Dates: start: 20081001, end: 20090201

REACTIONS (4)
  - AUTOIMMUNE HEPATITIS [None]
  - HEPATIC FIBROSIS [None]
  - HEPATITIS ACUTE [None]
  - SMOOTH MUSCLE ANTIBODY POSITIVE [None]
